FAERS Safety Report 15264708 (Version 1)
Quarter: 2018Q3

REPORT INFORMATION
  Report Type: Spontaneous
  Country: US (occurrence: US)
  Receive Date: 20180723
  Receipt Date: 20180723
  Transmission Date: 20181010
  Serious: Yes (Death)
  Sender: FDA-Public Use
  Company Number: None

PATIENT
  Age: 17 Year
  Sex: Female

DRUGS (2)
  1. DESMOPRESSIN [Suspect]
     Active Substance: DESMOPRESSIN
     Indication: CRANIOPHARYNGIOMA
     Route: 058
  2. DESMOPRESSIN [Suspect]
     Active Substance: DESMOPRESSIN
     Indication: HYPOPITUITARISM
     Route: 058

REACTIONS (1)
  - Death [None]
